FAERS Safety Report 9723620 (Version 3)
Quarter: 2013Q4

REPORT INFORMATION
  Report Type: Spontaneous
  Country: JP (occurrence: JP)
  Receive Date: 20131202
  Receipt Date: 20131219
  Transmission Date: 20140711
  Serious: Yes (Hospitalization)
  Sender: FDA-Public Use
  Company Number: JP-NAPPMUNDI-GBR-2013-0016450

PATIENT
  Age: 69 Year
  Sex: Female

DRUGS (7)
  1. OXYCODONE HCL PR TABLET 5 MG [Suspect]
     Indication: CANCER PAIN
     Dosage: 10 MG, DAILY
     Route: 048
     Dates: start: 20131016, end: 20131020
  2. FINIBAX [Suspect]
     Indication: BILIARY TRACT INFECTION
     Dosage: 0.5 G, BID
     Route: 042
     Dates: start: 20131018, end: 20131020
  3. FINIBAX [Suspect]
     Indication: SEPSIS
  4. ALDACTONE A [Concomitant]
     Indication: OEDEMA
     Dosage: 50 MG, DAILY
     Route: 048
     Dates: start: 20131010, end: 20131021
  5. DIART [Concomitant]
     Indication: OEDEMA
     Dosage: 60 MG, DAILY
     Route: 048
     Dates: start: 20131010, end: 20131021
  6. GASLON [Concomitant]
     Indication: GASTRITIS
     Dosage: 4 MG, DAILY
     Route: 048
     Dates: start: 20131010, end: 20131021
  7. AMPICILLIN SODIUM W/SULBACTAM SODIUM [Concomitant]
     Indication: INFECTION
     Dosage: 3 UNK, BID
     Dates: end: 20131021

REACTIONS (1)
  - Enanthema [Recovering/Resolving]
